FAERS Safety Report 8403541-5 (Version None)
Quarter: 2012Q2

REPORT INFORMATION
  Report Type: 
  Country: None (occurrence: None)
  Receive Date: 20120601
  Receipt Date: 20120522
  Transmission Date: 20120825
  Serious: Yes (Hospitalization)
  Sender: FDA-Public Use
  Company Number: JP-JNJFOC-20070703483

PATIENT
  Sex: Female
  Weight: 69 kg

DRUGS (26)
  1. INFLIXIMAB [Suspect]
     Indication: PSORIASIS
     Route: 042
     Dates: start: 20070621
  2. FAMOTIDINE [Concomitant]
     Dosage: START DATE BEFORE 18-OCT-2006
     Route: 048
     Dates: end: 20070726
  3. CALSLOT [Concomitant]
     Dosage: START DATE BEFORE 18-OCT-2006
     Route: 048
     Dates: end: 20070809
  4. URSO 250 [Concomitant]
     Indication: ALCOHOLIC LIVER DISEASE
     Route: 048
     Dates: start: 20070825
  5. CABAGIN U [Concomitant]
     Indication: ALCOHOLIC LIVER DISEASE
     Dosage: START DATE BEFORE 18-OCT-2006
     Route: 048
     Dates: end: 20070805
  6. OLOPATADINE HCL [Concomitant]
     Indication: PSORIASIS
     Dosage: START DATE BEFORE 18-OCT-2006
     Route: 048
     Dates: end: 20070713
  7. LIDOMEX [Concomitant]
     Indication: PSORIASIS
     Dosage: START DATE BEFORE 18-OCT-2006
     Route: 061
  8. INFLIXIMAB [Suspect]
     Route: 042
     Dates: start: 20061120
  9. INFLIXIMAB [Suspect]
     Route: 042
     Dates: start: 20070104
  10. ISONIAZID [Concomitant]
     Indication: ANTIBIOTIC PROPHYLAXIS
     Route: 048
     Dates: start: 20061027, end: 20070723
  11. PYDOXAL [Concomitant]
     Indication: PROPHYLAXIS
     Route: 048
     Dates: start: 20061027, end: 20070725
  12. TANATRIL [Concomitant]
     Indication: HYPERTENSION
     Dosage: START DATE BEFORE 18-OCT-2006
     Route: 048
     Dates: end: 20070713
  13. CAMLEED [Concomitant]
     Indication: GASTRITIS
     Dosage: START DATE BEFORE 18-OCT-2006
     Route: 048
     Dates: end: 20070810
  14. INFLIXIMAB [Suspect]
     Route: 042
     Dates: start: 20070221
  15. MYSER [Concomitant]
     Indication: PSORIASIS
     Dosage: START DATE BEFORE 18-OCT-2006
     Route: 061
  16. LOCOID [Concomitant]
     Indication: PSORIASIS
     Dosage: START DATE BEFORE 18-OCT-2006
     Route: 061
  17. NIZORAL [Concomitant]
     Indication: TINEA INFECTION
     Route: 061
     Dates: start: 20070315, end: 20070713
  18. EPINASTINE HYDROCHLORIDE [Concomitant]
     Indication: PSORIASIS
     Route: 048
     Dates: start: 20070714, end: 20070810
  19. CALSLOT [Concomitant]
     Indication: HYPERTENSION
     Route: 048
     Dates: start: 20070810
  20. INFLIXIMAB [Suspect]
     Route: 042
     Dates: start: 20070419
  21. INFLIXIMAB [Suspect]
     Route: 042
     Dates: start: 20061204
  22. FAMOTIDINE [Concomitant]
     Indication: GASTRITIS
     Route: 048
     Dates: start: 20070727, end: 20070808
  23. LIPITOR [Concomitant]
     Indication: CEREBROVASCULAR ACCIDENT PROPHYLAXIS
     Dosage: START DATE BEFORE 18-OCT-2006
     Route: 048
     Dates: end: 20070718
  24. URSO 250 [Concomitant]
     Dosage: START DATE BEFORE 18-OCT-2006
     Route: 048
     Dates: end: 20070824
  25. ALLOPURINOL [Concomitant]
     Indication: HYPERURICAEMIA
     Route: 048
     Dates: start: 20070315, end: 20070726
  26. MENTAX [Concomitant]
     Indication: TINEA INFECTION
     Route: 061
     Dates: start: 20070315, end: 20070713

REACTIONS (1)
  - PEMPHIGOID [None]
